FAERS Safety Report 4489678-4 (Version None)
Quarter: 2004Q4

REPORT INFORMATION
  Report Type: 
  Country: None (occurrence: None)
  Receive Date: 20041027
  Receipt Date: 20040921
  Transmission Date: 20050328
  Serious: No
  Sender: FDA-Public Use
  Company Number: DL2003235

PATIENT
  Age: 20 Year
  Sex: Female

DRUGS (2)
  1. MIFEPRISTONE TABLETS, 200MG (DANCO LABS) [Suspect]
     Indication: ABORTION INDUCED
     Dosage: 200 MG, ORAL
     Route: 048
     Dates: start: 20040811
  2. MISOPROSTOL [Suspect]
     Dosage: 800 MCG, VAGINAL
     Route: 067
     Dates: start: 20040812

REACTIONS (3)
  - ABDOMINAL PAIN [None]
  - CHILLS [None]
  - PYREXIA [None]
